FAERS Safety Report 9828566 (Version 1)
Quarter: 2013Q4

REPORT INFORMATION
  Report Type: Spontaneous
  Country: US (occurrence: None)
  Receive Date: 20131120
  Receipt Date: 20131120
  Transmission Date: 20140711
  Serious: No
  Sender: FDA-Public Use
  Company Number: 1000047927

PATIENT
  Age: 60 Year
  Sex: Female

DRUGS (3)
  1. VIIBRYD [Suspect]
     Indication: DEPRESSION
     Dates: start: 201204, end: 2012
  2. LITHIUM [Concomitant]
  3. TRAZODONE [Concomitant]

REACTIONS (2)
  - Weight increased [None]
  - Increased appetite [None]
